FAERS Safety Report 17504511 (Version 2)
Quarter: 2021Q1

REPORT INFORMATION
  Report Type: Spontaneous
  Country: US (occurrence: US)
  Receive Date: 20200305
  Receipt Date: 20210301
  Transmission Date: 20210419
  Serious: No
  Sender: FDA-Public Use
  Company Number: US-SA-2020SA053937

PATIENT
  Sex: Female

DRUGS (26)
  1. TRAZODONE HYDROCHLORIDE. [Concomitant]
     Active Substance: TRAZODONE HYDROCHLORIDE
  2. AUBAGIO [Suspect]
     Active Substance: TERIFLUNOMIDE
     Indication: MULTIPLE SCLEROSIS
     Dosage: 14 MG, QD
     Route: 048
  3. XENICAL DARK BLUE [Concomitant]
     Dosage: 120 MG
  4. LISINOPRIL. [Concomitant]
     Active Substance: LISINOPRIL
     Dosage: 120 MG
  5. MELATONIN [Concomitant]
     Active Substance: MELATONIN
  6. ZOLPIDEM TARTRATE. [Concomitant]
     Active Substance: ZOLPIDEM TARTRATE
     Dosage: UNK
  7. HYDROCODONE/ACETAMINOPHEN [Concomitant]
     Active Substance: ACETAMINOPHEN\HYDROCODONE
  8. XANAX [Concomitant]
     Active Substance: ALPRAZOLAM
  9. VITAMIN D [VITAMIN D NOS] [Concomitant]
     Active Substance: VITAMIN D NOS
     Dosage: 120 MG
  10. OXYCODONE HYDROCHLORIDE. [Concomitant]
     Active Substance: OXYCODONE HYDROCHLORIDE
     Dosage: 120 MG
  11. ZOLOFT [Concomitant]
     Active Substance: SERTRALINE HYDROCHLORIDE
     Dosage: 120 MG
  12. BACLOFEN. [Concomitant]
     Active Substance: BACLOFEN
  13. ZOLPIDEM TARTRATE. [Concomitant]
     Active Substance: ZOLPIDEM TARTRATE
  14. VESICARE [Concomitant]
     Active Substance: SOLIFENACIN SUCCINATE
  15. SODIUM [Concomitant]
     Active Substance: SODIUM
  16. LISINOPRIL. [Concomitant]
     Active Substance: LISINOPRIL
  17. OPANA [Concomitant]
     Active Substance: OXYMORPHONE HYDROCHLORIDE
     Dosage: 120 MG
  18. NYSTATIN AND TRIAMCINOLONE [Concomitant]
     Active Substance: NYSTATIN\TRIAMCINOLONE ACETONIDE
  19. VESICARE [Concomitant]
     Active Substance: SOLIFENACIN SUCCINATE
  20. XANAX [Concomitant]
     Active Substance: ALPRAZOLAM
  21. MORPHINE SULPHATE BP [Concomitant]
     Dosage: 120 MG
  22. ZOLOFT [Concomitant]
     Active Substance: SERTRALINE HYDROCHLORIDE
  23. BACLOFEN. [Concomitant]
     Active Substance: BACLOFEN
  24. TRAZODONE HYDROCHLORIDE. [Concomitant]
     Active Substance: TRAZODONE HYDROCHLORIDE
  25. OPANA [Concomitant]
     Active Substance: OXYMORPHONE HYDROCHLORIDE
  26. MELATONIN [Concomitant]
     Active Substance: MELATONIN
     Dosage: 120 MG

REACTIONS (2)
  - Product dose omission issue [Unknown]
  - Product dose omission issue [Unknown]

NARRATIVE: CASE EVENT DATE: 2021
